FAERS Safety Report 9409985 (Version 1)
Quarter: 2013Q3

REPORT INFORMATION
  Report Type: Spontaneous
  Country: CN (occurrence: CN)
  Receive Date: 20130719
  Receipt Date: 20130719
  Transmission Date: 20140515
  Serious: Yes (Hospitalization)
  Sender: FDA-Public Use
  Company Number: CN-PFIZER INC-2013208098

PATIENT
  Age: 70 Year
  Sex: Female

DRUGS (6)
  1. GABAPENTIN [Suspect]
     Indication: EPILEPSY
     Dosage: 300 MG, QD
     Route: 048
     Dates: start: 20120920, end: 20120920
  2. GABAPENTIN [Suspect]
     Dosage: 300 MG, BID
     Route: 048
     Dates: start: 20120921, end: 20121023
  3. NIFEDIPINE [Concomitant]
     Dosage: UNK
     Route: 048
     Dates: start: 20120906
  4. IRBESARTAN [Concomitant]
     Dosage: UNK
     Route: 048
     Dates: start: 20120906
  5. ACETYLSALICYLIC ACID [Concomitant]
     Dosage: UNK
     Route: 048
     Dates: start: 20120906
  6. FLUVASTATIN SODIUM [Concomitant]
     Dosage: UNK
     Route: 048
     Dates: start: 20120906

REACTIONS (3)
  - Hepatic function abnormal [Recovered/Resolved]
  - Drug-induced liver injury [Recovered/Resolved]
  - Abdominal pain [Recovered/Resolved]
